FAERS Safety Report 19584664 (Version 1)
Quarter: 2021Q3

REPORT INFORMATION
  Report Type: Report from Study
  Country: US (occurrence: US)
  Receive Date: 20210720
  Receipt Date: 20210720
  Transmission Date: 20211014
  Serious: Yes (Life-Threatening, Other)
  Sender: FDA-Public Use
  Company Number: US-SHIRE-US202000804AA

PATIENT
  Sex: Female

DRUGS (2)
  1. HUMAN NORMAL IMMUNOGLOBULIN; LIQUID [Suspect]
     Active Substance: HUMAN IMMUNOGLOBULIN G
     Indication: IMMUNODEFICIENCY COMMON VARIABLE
     Dosage: UNK
     Route: 042
  2. CUVITRU [Suspect]
     Active Substance: HUMAN IMMUNOGLOBULIN G
     Indication: PRODUCT USED FOR UNKNOWN INDICATION
     Dosage: UNK
     Route: 065

REACTIONS (18)
  - Bipolar disorder [Unknown]
  - Depression [Unknown]
  - Inappropriate schedule of product administration [Unknown]
  - Pruritus [Unknown]
  - Concussion [Not Recovered/Not Resolved]
  - Disease progression [Unknown]
  - Jaw fracture [Unknown]
  - Skull fracture [Unknown]
  - Head injury [Unknown]
  - Cystitis [Unknown]
  - Asthenia [Unknown]
  - Pneumonia [Unknown]
  - Hyperhidrosis [Unknown]
  - Serum sickness [Unknown]
  - Fall [Unknown]
  - Anxiety [Unknown]
  - Unevaluable event [Unknown]
  - Rib fracture [Unknown]
